FAERS Safety Report 9324609 (Version 1)
Quarter: 2013Q2

REPORT INFORMATION
  Report Type: Report from Study
  Country: GB (occurrence: GB)
  Receive Date: 20130603
  Receipt Date: 20130603
  Transmission Date: 20140414
  Serious: Yes (Hospitalization)
  Sender: FDA-Public Use
  Company Number: GB-ABBOTT-13P-167-1097930-00

PATIENT
  Age: 24 Year
  Sex: Female

DRUGS (2)
  1. HUMIRA [Suspect]
     Indication: PSORIASIS
     Route: 058
     Dates: start: 20120320, end: 20121001
  2. HUMIRA [Suspect]
     Route: 058
     Dates: start: 20130430

REACTIONS (3)
  - Postpartum haemorrhage [Recovered/Resolved]
  - Postpartum disorder [Recovered/Resolved]
  - Urinary retention [Recovered/Resolved]
